FAERS Safety Report 5961413-X (Version None)
Quarter: 2008Q4

REPORT INFORMATION
  Report Type: 
  Country: None (occurrence: None)
  Receive Date: 20081114
  Receipt Date: 20071015
  Transmission Date: 20090506
  Serious: Yes (Other)
  Sender: FDA-Public Use
  Company Number: US-WYE-H00702507

PATIENT
  Age: 60 Year
  Sex: Female
  Weight: 83.99 kg

DRUGS (2)
  1. ADVIL COLD AND SINUS [Suspect]
     Indication: NASOPHARYNGITIS
     Dosage: 2 TABLETS DAILY, ORAL
     Route: 048
     Dates: start: 20071011, end: 20071012
  2. ADVIL COLD AND SINUS [Suspect]
     Indication: RHINORRHOEA
     Dosage: 2 TABLETS DAILY, ORAL
     Route: 048
     Dates: start: 20071011, end: 20071012

REACTIONS (2)
  - HYPOAESTHESIA FACIAL [None]
  - HYPOAESTHESIA ORAL [None]
